FAERS Safety Report 5337503-1 (Version None)
Quarter: 2007Q2

REPORT INFORMATION
  Report Type: 
  Country: None (occurrence: None)
  Receive Date: 20070529
  Receipt Date: 20070521
  Transmission Date: 20071010
  Serious: Yes (Hospitalization)
  Sender: FDA-Public Use
  Company Number: US-AMGEN-US225888

PATIENT
  Sex: Male
  Weight: 78 kg

DRUGS (6)
  1. EPOGEN [Suspect]
     Indication: DIALYSIS
     Route: 065
     Dates: start: 20061101
  2. RENAGEL [Concomitant]
  3. FOLIC ACID [Concomitant]
     Dates: start: 20061001
  4. VITAMIN A AND D [Concomitant]
  5. VITAMIN B COMPLEX WITH C [Concomitant]
     Dates: start: 20061001
  6. NEXIUM [Concomitant]
     Dates: start: 20061001

REACTIONS (1)
  - RECTAL CANCER RECURRENT [None]
